FAERS Safety Report 18951996 (Version 1)
Quarter: 2021Q1

REPORT INFORMATION
  Report Type: Other
  Country: GB (occurrence: GB)
  Receive Date: 20210301
  Receipt Date: 20210301
  Transmission Date: 20210420
  Serious: Yes (Other)
  Sender: FDA-Public Use
  Company Number: GB-CELLTRION INC.-2021GB001943

PATIENT

DRUGS (31)
  1. PACLITAXEL LIPOSOME [Suspect]
     Active Substance: PACLITAXEL
     Dosage: 300 MG, EVERY 3 WEEKS
     Route: 042
     Dates: start: 20170816, end: 20170906
  2. APIXABAN [Concomitant]
     Active Substance: APIXABAN
     Dosage: 2.5 MG, EVERY 0.5 DAY
     Route: 048
     Dates: start: 20190819, end: 20190917
  3. DOMPERIDONE [Concomitant]
     Active Substance: DOMPERIDONE
     Dosage: 10 MG, EVERY 0.33 DAY
     Route: 048
     Dates: start: 20170523
  4. CLOBETASOL PROPIONATE. [Concomitant]
     Active Substance: CLOBETASOL PROPIONATE
     Dosage: UNK, EVERY 0.5 DAY
     Route: 061
     Dates: start: 20170210
  5. PACLITAXEL LIPOSOME [Suspect]
     Active Substance: PACLITAXEL
     Indication: BREAST CANCER
     Dosage: 375 MG, EVERY 3 WEEKS
     Route: 042
     Dates: start: 20170705, end: 20170726
  6. CHLORHEXIDINE GLUCONATE. [Concomitant]
     Active Substance: CHLORHEXIDINE GLUCONATE
     Dosage: 10 ML, EVERY 0.25 DAY
     Route: 061
     Dates: start: 20170525
  7. FUSIDIC ACID [Concomitant]
     Active Substance: FUSIDIC ACID
     Dosage: UNK
     Dates: start: 201905
  8. LANSOPRAZOLE. [Concomitant]
     Active Substance: LANSOPRAZOLE
     Dosage: 30 MG, QD
     Route: 048
     Dates: start: 20190730
  9. AMITRIPTYLINE HYDROCHLORIDE. [Concomitant]
     Active Substance: AMITRIPTYLINE HYDROCHLORIDE
     Indication: DEPRESSED MOOD
     Dosage: 5 MG, QD
     Route: 048
     Dates: start: 20190827
  10. PACLITAXEL LIPOSOME [Suspect]
     Active Substance: PACLITAXEL
     Dosage: 375 MG, EVERY 3 WEEKS
     Route: 042
     Dates: start: 20170705, end: 20170726
  11. PERTUZUMAB. [Suspect]
     Active Substance: PERTUZUMAB
     Dosage: 840 MG, LOADING DOSE
     Route: 042
     Dates: start: 20170524, end: 20170524
  12. CHLORPHENAMINE [Concomitant]
     Active Substance: CHLORPHENIRAMINE MALEATE
     Dosage: 4 MG, EVERY 0.25 DAY
     Route: 048
     Dates: start: 20170526
  13. TRASTUZUMAB (UNKNOWN) [Suspect]
     Active Substance: TRASTUZUMAB
     Indication: BREAST CANCER
     Dosage: 525 MG, LOADING DOSE
     Route: 042
     Dates: start: 20170524, end: 20170524
  14. TRASTUZUMAB (UNKNOWN) [Suspect]
     Active Substance: TRASTUZUMAB
     Dosage: 400 MG, EVERY 3 WEEKS
     Route: 042
     Dates: start: 20170614, end: 20180425
  15. TRASTUZUMAB EMTANSINE [Suspect]
     Active Substance: ADO-TRASTUZUMAB EMTANSINE
     Indication: BREAST CANCER
     Dosage: 200 MG, EVERY 3 WEEKS
     Route: 042
     Dates: start: 20190627
  16. TRASTUZUMAB EMTANSINE [Suspect]
     Active Substance: ADO-TRASTUZUMAB EMTANSINE
     Dosage: 240 MG, EVERY 3 WEEKS
     Route: 042
     Dates: start: 20190427, end: 20190606
  17. PACLITAXEL LIPOSOME [Suspect]
     Active Substance: PACLITAXEL
     Dosage: 450 MG, EVERY 3 WEEKS
     Route: 042
     Dates: start: 20170614, end: 20170614
  18. TINZAPARIN [Concomitant]
     Active Substance: TINZAPARIN
     Dosage: 4500 IU, QD
     Route: 058
     Dates: start: 20190918
  19. CETIRIZINE [Concomitant]
     Active Substance: CETIRIZINE HYDROCHLORIDE
     Dosage: 10 MG, QD
     Route: 048
     Dates: start: 20190313
  20. IKERVIS [Concomitant]
     Active Substance: CYCLOSPORINE
     Dosage: UNK
     Route: 047
     Dates: start: 201708
  21. ZOLEDRONIC ACID [Concomitant]
     Active Substance: ZOLEDRONIC ACID
     Dosage: 4 MG, EVERY 3?4 WEEKS
     Route: 042
     Dates: start: 20170525
  22. TINZAPARIN [Concomitant]
     Active Substance: TINZAPARIN
     Dosage: 12000 UNIT
     Route: 058
     Dates: start: 20170713
  23. LOPERAMIDE [Concomitant]
     Active Substance: LOPERAMIDE
     Dosage: 2 MG, PRN (AS NEEDED)
     Route: 048
     Dates: start: 20170613
  24. PARACETAMOL [Concomitant]
     Active Substance: ACETAMINOPHEN
     Dosage: 1 IU
     Route: 048
     Dates: start: 20170525
  25. TRANEXAMIC ACID. [Concomitant]
     Active Substance: TRANEXAMIC ACID
     Dosage: UNK
     Dates: start: 20190722
  26. SANDO K [POTASSIUM BICARBONATE;POTASSIUM CHLORIDE] [Concomitant]
     Active Substance: POTASSIUM BICARBONATE\POTASSIUM CHLORIDE
     Dosage: UNK, EVERY 0.5 DAY
     Dates: start: 20170525
  27. CALCICHEW D3 FORTE [Concomitant]
     Active Substance: CALCIUM\CHOLECALCIFEROL
     Dosage: UNK, EVERY 0.33 DAY
     Route: 048
     Dates: start: 20170525
  28. TRASTUZUMAB (UNKNOWN) [Suspect]
     Active Substance: TRASTUZUMAB
     Dosage: 378 MG, EVERY 3 WEEKS
     Route: 042
     Dates: start: 20180516, end: 20190327
  29. DOCETAXEL. [Suspect]
     Active Substance: DOCETAXEL
     Indication: BREAST CANCER
     Dosage: 130 MG, EVERY 3 WEEKS
     Route: 042
     Dates: start: 20170525, end: 20170525
  30. PERTUZUMAB. [Suspect]
     Active Substance: PERTUZUMAB
     Indication: BREAST CANCER
     Dosage: 420 MG, EVERY 3 WEEKS
     Route: 042
     Dates: start: 20170614, end: 20190327
  31. SALIVA SUBSTITUTE [Concomitant]
     Active Substance: CARBOXYMETHYLCELLULOSE SODIUM\DEVICE\SORBINICATE
     Dosage: UNK, EVERY 0.25 DAY
     Route: 060
     Dates: start: 20170526

REACTIONS (2)
  - Tenosynovitis [Recovered/Resolved]
  - Biliary sepsis [Recovered/Resolved]

NARRATIVE: CASE EVENT DATE: 20190604
